FAERS Safety Report 10233486 (Version 1)
Quarter: 2014Q2

REPORT INFORMATION
  Report Type: Spontaneous
  Country: US (occurrence: None)
  Receive Date: 20140611
  Receipt Date: 20140611
  Transmission Date: 20141212
  Serious: Yes (Hospitalization)
  Sender: FDA-Public Use
  Company Number: None

PATIENT
  Age: 53 Year
  Sex: Male
  Weight: 141.8 kg

DRUGS (1)
  1. HYDROCHLOROTHIAZIDE/LISINOPRIL [Suspect]
     Indication: HYPERTENSION
     Route: 048
     Dates: start: 20130212, end: 20140427

REACTIONS (6)
  - Dyspnoea [None]
  - Throat tightness [None]
  - Chest pain [None]
  - Swelling face [None]
  - Generalised oedema [None]
  - Lip swelling [None]
